FAERS Safety Report 8479172-8 (Version None)
Quarter: 2012Q2

REPORT INFORMATION
  Report Type: 
  Country: None (occurrence: None)
  Receive Date: 20120402
  Receipt Date: 20111123
  Transmission Date: 20120825
  Serious: Yes (Life-Threatening)
  Sender: FDA-Public Use
  Company Number: 2011ST000469

PATIENT
  Age: 12 Year
  Sex: Male
  Weight: 38 kg

DRUGS (5)
  1. CYTARABINE [Concomitant]
  2. ONCASPAR [Suspect]
     Indication: ACUTE LYMPHOCYTIC LEUKAEMIA RECURRENT
     Dosage: 3150 IU;X1;IV
     Route: 042
     Dates: start: 20111023, end: 20111023
  3. ONCASPAR [Suspect]
  4. PENTAMIDINE ISETHIONATE [Concomitant]
  5. CETIRIZINE SCOPOLAMINE /00008701/ [Concomitant]

REACTIONS (5)
  - HYPERSENSITIVITY [None]
  - LARYNGEAL OEDEMA [None]
  - PRURITUS [None]
  - COUGH [None]
  - DYSPNOEA [None]
